FAERS Safety Report 5530880-8 (Version None)
Quarter: 2007Q4

REPORT INFORMATION
  Report Type: 
  Country: None (occurrence: None)
  Receive Date: 20071130
  Receipt Date: 20071116
  Transmission Date: 20080405
  Serious: Yes (Other)
  Sender: FDA-Public Use
  Company Number: GB-RANBAXY-2007RR-11545

PATIENT

DRUGS (1)
  1. ISOTRETINOIN 10MG CAPSULES [Suspect]
     Dosage: UNK
     Route: 065
     Dates: start: 20070401

REACTIONS (1)
  - CONVULSION [None]
